FAERS Safety Report 9384311 (Version 2)
Quarter: 2013Q3

REPORT INFORMATION
  Report Type: Report from Study
  Country: AE (occurrence: AE)
  Receive Date: 20130705
  Receipt Date: 20130719
  Transmission Date: 20140515
  Serious: Yes (Hospitalization)
  Sender: FDA-Public Use
  Company Number: PHHY2013AE068128

PATIENT
  Age: 7 Year
  Sex: Female
  Weight: 24.1 kg

DRUGS (1)
  1. ICL670A [Suspect]
     Indication: THALASSAEMIA BETA
     Dosage: 850 MG, PER DAY
     Route: 048
     Dates: start: 20090219, end: 20120303

REACTIONS (6)
  - Asthenia [Recovered/Resolved]
  - Fatigue [Recovered/Resolved]
  - Vomiting [Recovered/Resolved]
  - Pallor [Recovered/Resolved]
  - Decreased appetite [Recovered/Resolved]
  - Anaemia [Recovered/Resolved]
